FAERS Safety Report 4972875-9 (Version None)
Quarter: 2006Q2

REPORT INFORMATION
  Report Type: 
  Country: None (occurrence: None)
  Receive Date: 20060410
  Receipt Date: 20060327
  Transmission Date: 20061013
  Serious: Yes (Hospitalization)
  Sender: FDA-Public Use
  Company Number: 2006PV009704

PATIENT
  Age: 59 Year
  Sex: Male
  Weight: 88.4514 kg

DRUGS (13)
  1. BYETTA [Suspect]
     Indication: DIABETES MELLITUS NON-INSULIN-DEPENDENT
     Dosage: SEE IMAGE
     Route: 058
     Dates: start: 20050916, end: 20051116
  2. BYETTA [Suspect]
     Indication: DIABETES MELLITUS NON-INSULIN-DEPENDENT
     Dosage: SEE IMAGE
     Route: 058
     Dates: start: 20051117, end: 20060101
  3. BYETTA [Suspect]
     Indication: DIABETES MELLITUS NON-INSULIN-DEPENDENT
     Dosage: SEE IMAGE
     Route: 058
     Dates: start: 20060101
  4. LANTUS [Concomitant]
  5. GLUCOPHAGE XR [Concomitant]
  6. AMARYL [Concomitant]
  7. LOPRESSOR [Concomitant]
  8. CARDIZEM DM [Concomitant]
  9. LIPITOR [Concomitant]
  10. DILTIAZEM [Concomitant]
  11. FOLIC ACID [Concomitant]
  12. ASPIRIN [Concomitant]
  13. NITROGLYCERIN [Concomitant]

REACTIONS (4)
  - ANGINA UNSTABLE [None]
  - CORONARY ARTERY STENOSIS [None]
  - MYOCARDIAL INFARCTION [None]
  - NAUSEA [None]
